FAERS Safety Report 10184801 (Version 2)
Quarter: 2014Q2

REPORT INFORMATION
  Report Type: Spontaneous
  Country: NL (occurrence: NL)
  Receive Date: 20140521
  Receipt Date: 20140521
  Transmission Date: 20141212
  Serious: Yes (Other)
  Sender: FDA-Public Use
  Company Number: PHHY2013NL096707

PATIENT
  Sex: Female

DRUGS (1)
  1. GILENYA [Suspect]
     Indication: RELAPSING-REMITTING MULTIPLE SCLEROSIS
     Dosage: 0.5 MG, UNK
     Route: 048
     Dates: start: 20120514

REACTIONS (6)
  - Circulatory collapse [Unknown]
  - Oesophageal spasm [Unknown]
  - Oropharyngeal pain [Unknown]
  - Chest pain [Unknown]
  - Muscle spasms [Unknown]
  - Dizziness [Unknown]
